FAERS Safety Report 13000491 (Version 1)
Quarter: 2016Q4

REPORT INFORMATION
  Report Type: Spontaneous
  Country: US (occurrence: US)
  Receive Date: 20161206
  Receipt Date: 20161206
  Transmission Date: 20170207
  Serious: Yes (Hospitalization, Other)
  Sender: FDA-Public Use
  Company Number: US-SUN PHARMACEUTICAL INDUSTRIES LTD-2016US-125544

PATIENT
  Age: 21 Year
  Sex: Female

DRUGS (1)
  1. BUPROPION. [Suspect]
     Active Substance: BUPROPION
     Indication: PRODUCT USED FOR UNKNOWN INDICATION
     Dosage: UNK
     Route: 048

REACTIONS (13)
  - Seizure [Unknown]
  - Transaminases increased [Recovered/Resolved]
  - Sinus bradycardia [Recovered/Resolved]
  - Suicide attempt [Unknown]
  - Hypotension [Unknown]
  - Electrocardiogram QRS complex prolonged [Recovered/Resolved]
  - Hyperreflexia [Unknown]
  - Lactic acidosis [Recovered/Resolved]
  - Mydriasis [Unknown]
  - Agitation [Unknown]
  - Electrocardiogram QT prolonged [Recovered/Resolved]
  - Overdose [Unknown]
  - Sinus tachycardia [Recovered/Resolved]
